FAERS Safety Report 9538768 (Version 1)
Quarter: 2013Q2

REPORT INFORMATION
  Report Type: Spontaneous
  Country: US (occurrence: None)
  Receive Date: 20130507
  Receipt Date: 20130507
  Transmission Date: 20140414
  Serious: Yes (Other)
  Sender: FDA-Public Use
  Company Number: PHEH2012US025557

PATIENT
  Age: 66 Year
  Sex: Female

DRUGS (9)
  1. AFINITOR [Suspect]
     Indication: BREAST CANCER
     Route: 048
  2. EXEMESTAN (EXEMESTANE) [Concomitant]
  3. METFORMIN (METFORMIN) [Concomitant]
  4. ATENOLOL (ATENOLOL) [Concomitant]
  5. LISINOPRIL (LISINOPRIL) [Concomitant]
  6. TRAZODONE (TRAZODONE) [Concomitant]
  7. CITALOPRAM (CITALOPRAM) [Concomitant]
  8. L THYROXINE (LEVOTHYROXINE SODIUM) [Concomitant]
  9. TRIAMTERENE/HCTZ (HYDROCHLOROTHIAZIDE, TRIAMTERENE) [Concomitant]

REACTIONS (2)
  - Stomatitis [None]
  - Rash [None]
